FAERS Safety Report 8072442-7 (Version None)
Quarter: 2012Q1

REPORT INFORMATION
  Report Type: 
  Country: None (occurrence: None)
  Receive Date: 20120124
  Receipt Date: 20120124
  Transmission Date: 20120608
  Serious: No
  Sender: FDA-Public Use
  Company Number: None

PATIENT
  Age: 5 Year
  Sex: 0

DRUGS (2)
  1. CYTRA-K (POT CITRATE/CITRIC ACID) [Suspect]
     Dosage: BOTTLE
  2. CYTRA-2 (SOD CITRATE/CITRIC ACID) [Suspect]
     Dosage: BOTTLE

REACTIONS (5)
  - MEDICATION ERROR [None]
  - WRONG DRUG ADMINISTERED [None]
  - CHEST PAIN [None]
  - DRUG DISPENSING ERROR [None]
  - HYPERKALAEMIA [None]
